FAERS Safety Report 5410012-7 (Version None)
Quarter: 2007Q3

REPORT INFORMATION
  Report Type: 
  Country: None (occurrence: None)
  Receive Date: 20070713
  Receipt Date: 20070425
  Transmission Date: 20080115
  Serious: No
  Sender: FDA-Public Use
  Company Number: 2007SP001510

PATIENT
  Age: 88 Year
  Sex: Female
  Weight: 68.0396 kg

DRUGS (5)
  1. LUNESTA [Suspect]
     Indication: INSOMNIA
     Dosage: 2 MG;PRN;ORAL; 1MG;ORAL
     Route: 048
     Dates: start: 20070424, end: 20070424
  2. LUNESTA [Suspect]
     Indication: INSOMNIA
     Dosage: 2 MG;PRN;ORAL; 1MG;ORAL
     Route: 048
     Dates: start: 20070401
  3. ACETAMINOPHEN  W/ PROPOXYPPHENE [Concomitant]
  4. BENAZEPRIL HYDROCHLORIDE [Concomitant]
  5. SPIRONOLACTONE [Concomitant]

REACTIONS (2)
  - DYSGEUSIA [None]
  - NAUSEA [None]
